FAERS Safety Report 11861446 (Version 1)
Quarter: 2015Q4

REPORT INFORMATION
  Report Type: Spontaneous
  Country: US (occurrence: US)
  Receive Date: 20151222
  Receipt Date: 20151222
  Transmission Date: 20160305
  Serious: No
  Sender: FDA-Public Use
  Company Number: US-AVANIR PHARMACEUTICALS, INC.-2014NUEUSA00335

PATIENT
  Sex: Female
  Weight: 58.96 kg

DRUGS (5)
  1. NUEDEXTA [Suspect]
     Active Substance: DEXTROMETHORPHAN HYDROBROMIDE\QUINIDINE SULFATE
     Indication: AFFECT LABILITY
     Dosage: 1 CAP, BID
     Route: 048
  2. BACLOFEN. [Concomitant]
     Active Substance: BACLOFEN
     Indication: UPPER MOTOR NEURONE LESION
  3. TIZANIDINE. [Concomitant]
     Active Substance: TIZANIDINE
     Indication: UPPER MOTOR NEURONE LESION
  4. OTHER LIPID MODIFYING AGENTS [Concomitant]
     Active Substance: UNSPECIFIED INGREDIENT
     Indication: BLOOD CHOLESTEROL ABNORMAL
  5. ANTIHYPERTENSIVES [Concomitant]
     Active Substance: UNSPECIFIED INGREDIENT
     Indication: BLOOD PRESSURE MANAGEMENT

REACTIONS (4)
  - Upper motor neurone lesion [None]
  - Drug effect decreased [Not Recovered/Not Resolved]
  - Disease progression [None]
  - Amyotrophic lateral sclerosis [None]

NARRATIVE: CASE EVENT DATE: 2014
